FAERS Safety Report 9290482 (Version 1)
Quarter: 2012Q4

REPORT INFORMATION
  Report Type: Spontaneous
  Country: DE (occurrence: None)
  Receive Date: 20121002
  Receipt Date: 20121002
  Transmission Date: 20130627
  Serious: Yes (Hospitalization)
  Sender: FDA-Public Use
  Company Number: 2012033411

PATIENT
  Age: 65 Year
  Sex: Male

DRUGS (12)
  1. PRIVIGEN (IMMUNE GLOBULIN INTRAVENOUS (HUMAN) 10% LIQUID) [Suspect]
     Indication: CHRONIC LYMPHOCYTIC LEUKAEMIA
     Route: 042
     Dates: start: 20120306, end: 20120306
  2. PRIVIGEN (IMMUNE GLOBULIN INTRAVENOUS (HUMAN) 10% LIQUID) [Suspect]
     Indication: CHRONIC LYMPHOCYTIC LEUKAEMIA
     Dates: start: 20120410, end: 20120410
  3. PRIVIGEN (IMMUNE GLOBULIN INTRAVENOUS (HUMAN) 10% LIQUID) [Suspect]
     Indication: CHRONIC LYMPHOCYTIC LEUKAEMIA
     Dates: start: 20120508, end: 20120508
  4. PRIVIGEN (IMMUNE GLOBULIN INTRAVENOUS (HUMAN) 10% LIQUID) [Suspect]
     Indication: CHRONIC LYMPHOCYTIC LEUKAEMIA
     Dates: start: 20120605, end: 20120605
  5. PRIVIGEN (IMMUNE GLOBULIN INTRAVENOUS (HUMAN) 10% LIQUID) [Suspect]
     Indication: CHRONIC LYMPHOCYTIC LEUKAEMIA
     Dates: start: 20120703, end: 20120703
  6. PRIVIGEN (IMMUNE GLOBULIN INTRAVENOUS (HUMAN) 10% LIQUID) [Suspect]
     Indication: CHRONIC LYMPHOCYTIC LEUKAEMIA
     Dates: start: 20120813, end: 20120813
  7. ANTIMYCOTICS FOR SYSTEMIC USE, EXCL GRISEOFUL [Concomitant]
  8. INSULIN (INSULIN) [Concomitant]
  9. RAMIPRIL (RAMIPRIL) [Concomitant]
  10. BISOPROLOL (BISOPROLOL) [Concomitant]
  11. GABAPENTIN (GABAPENTIN) [Concomitant]
  12. AMPHO MORONAL (AMPHOTERICIN B) [Concomitant]

REACTIONS (3)
  - Foot amputation [None]
  - Soft tissue infection [None]
  - Staphylococcal infection [None]
